FAERS Safety Report 23434039 (Version 2)
Quarter: 2025Q1

REPORT INFORMATION
  Report Type: Other
  Country: IN (occurrence: IN)
  Receive Date: 20240123
  Receipt Date: 20250126
  Transmission Date: 20250408
  Serious: Yes (Life-Threatening, Hospitalization, Other)
  Sender: DEXCEL LTD.
  Company Number: IN-DEXPHARM-20222583

PATIENT
  Age: 50 Year
  Sex: Male

DRUGS (1)
  1. DICLOFENAC [Suspect]
     Active Substance: DICLOFENAC
     Indication: Back pain

REACTIONS (3)
  - Kounis syndrome [Recovered/Resolved]
  - Atrial fibrillation [Recovered/Resolved]
  - Seizure [Recovered/Resolved]
